FAERS Safety Report 7819898-X (Version None)
Quarter: 2011Q4

REPORT INFORMATION
  Report Type: 
  Country: None (occurrence: None)
  Receive Date: 20111018
  Receipt Date: 20110412
  Transmission Date: 20120403
  Serious: No
  Sender: FDA-Public Use
  Company Number: US-ASTRAZENECA-2011SE02384

PATIENT
  Age: 71 Year
  Sex: Male
  Weight: 81.6 kg

DRUGS (4)
  1. IPRATROPIUM BROMIDE [Concomitant]
  2. SYMBICORT [Suspect]
     Indication: CHRONIC OBSTRUCTIVE PULMONARY DISEASE
     Dosage: 160 MCG, PUFFS BID
     Route: 055
     Dates: start: 20100920
  3. OMEPRAZOLE [Concomitant]
     Indication: GASTROOESOPHAGEAL REFLUX DISEASE
  4. ALBUTEROL [Concomitant]
     Indication: CHRONIC OBSTRUCTIVE PULMONARY DISEASE

REACTIONS (3)
  - DIZZINESS [None]
  - FEELING DRUNK [None]
  - INCORRECT DOSE ADMINISTERED [None]
